FAERS Safety Report 7015174-6 (Version None)
Quarter: 2010Q3

REPORT INFORMATION
  Report Type: 
  Country: None (occurrence: None)
  Receive Date: 20100927
  Receipt Date: 20091111
  Transmission Date: 20110219
  Serious: No
  Sender: FDA-Public Use
  Company Number: US-ASTRAZENECA-2009SE25951

PATIENT
  Age: 64 Year
  Sex: Female
  Weight: 73.5 kg

DRUGS (3)
  1. ARIMIDEX [Suspect]
     Indication: BREAST CANCER
     Route: 048
     Dates: start: 20050101
  2. FOSAMAX [Concomitant]
  3. CALCIUM [Concomitant]

REACTIONS (2)
  - ALOPECIA [None]
  - HAIR DISORDER [None]
